FAERS Safety Report 6590547-4 (Version None)
Quarter: 2010Q1

REPORT INFORMATION
  Report Type: 
  Country: None (occurrence: None)
  Receive Date: 20100219
  Receipt Date: 20100208
  Transmission Date: 20100710
  Serious: Yes (Disabling)
  Sender: FDA-Public Use
  Company Number: FR-PFIZER INC-2010016696

PATIENT
  Age: 81 Year
  Sex: Female

DRUGS (5)
  1. SUTENT [Suspect]
     Indication: METASTATIC RENAL CELL CARCINOMA
     Dosage: 50 MG, 1X/DAY
     Route: 048
     Dates: start: 20090910, end: 20091002
  2. SUTENT [Suspect]
     Dosage: 37.5 MG DAILY, 4 WEEKS OUT OF 2
     Route: 048
     Dates: start: 20091012, end: 20091118
  3. CORTANCYL [Suspect]
     Dosage: UNK
     Route: 048
     Dates: start: 20090901
  4. CORTANCYL [Suspect]
     Dosage: UNK
     Dates: start: 20091002
  5. CORTANCYL [Suspect]
     Dosage: UNK
     Dates: start: 20091012

REACTIONS (1)
  - OSTEONECROSIS [None]
